FAERS Safety Report 6173555-7 (Version None)
Quarter: 2009Q2

REPORT INFORMATION
  Report Type: 
  Country: None (occurrence: None)
  Receive Date: 20090430
  Receipt Date: 20090422
  Transmission Date: 20091009
  Serious: Yes (Other)
  Sender: FDA-Public Use
  Company Number: B0571681A

PATIENT
  Age: 45 Year
  Sex: Male

DRUGS (9)
  1. ZANTAC [Suspect]
     Indication: DRUG USE FOR UNKNOWN INDICATION
     Route: 048
     Dates: start: 20090214
  2. ZOLOFT [Suspect]
     Indication: DRUG USE FOR UNKNOWN INDICATION
     Route: 048
     Dates: start: 20090209
  3. MYSLEE [Concomitant]
     Route: 048
  4. DEPAS [Concomitant]
     Route: 048
  5. ALPRAZOLAM [Concomitant]
     Route: 048
  6. TENORMIN [Concomitant]
     Route: 048
  7. ALLEGRA [Concomitant]
     Route: 048
  8. FLUTICASONE PROPIONATE [Concomitant]
     Route: 045
  9. RIZABEN [Concomitant]
     Route: 031

REACTIONS (2)
  - ANTISOCIAL BEHAVIOUR [None]
  - HALLUCINATION, AUDITORY [None]
